FAERS Safety Report 4282857-0 (Version None)
Quarter: 2004Q1

REPORT INFORMATION
  Report Type: 
  Country: None (occurrence: None)
  Receive Date: 20040130
  Receipt Date: 20030711
  Transmission Date: 20041129
  Serious: No
  Sender: FDA-Public Use
  Company Number: US-BRISTOL-MYERS SQUIBB COMPANY-12323895

PATIENT
  Age: 58 Year
  Sex: Male
  Weight: 68 kg

DRUGS (2)
  1. SERZONE [Suspect]
     Indication: DEPRESSION
     Dosage: STARTED SERZONE 250MG BID 5 YRS AGO,THEN INCREASED TO 300MG BID ON 26-JUN-03
     Route: 048
  2. KLONOPIN [Concomitant]

REACTIONS (1)
  - VISUAL DISTURBANCE [None]
